FAERS Safety Report 16200562 (Version 2)
Quarter: 2019Q2

REPORT INFORMATION
  Report Type: Spontaneous
  Country: NL (occurrence: NL)
  Receive Date: 20190416
  Receipt Date: 20190424
  Transmission Date: 20190711
  Serious: Yes (Hospitalization, Other)
  Sender: FDA-Public Use
  Company Number: NL-AUROBINDO-AUR-APL-2019-020107

PATIENT

DRUGS (2)
  1. LEVONORGESTREL+ETHINYLESTRADIOL 150/30 ?G FILM COATED TABLET [Suspect]
     Active Substance: ETHINYL ESTRADIOL\LEVONORGESTREL
     Indication: CONTRACEPTION
     Dosage: 1 DOSAGE FORM, 1 X PER DAG 1 STUK
     Route: 065
     Dates: start: 20080101, end: 20171208
  2. DESOGESTREL+ETHINYLESTRADIOL 0.15MG+0.03 MG FILM COATED TABLETS [Suspect]
     Active Substance: DESOGESTREL\ETHINYL ESTRADIOL
     Indication: CONTRACEPTION
     Dosage: 1 DOSAGE FORM; 1 X PER DAG 1 STUK
     Route: 065
     Dates: start: 2009, end: 20171208

REACTIONS (2)
  - Hepatic haemorrhage [Recovered/Resolved with Sequelae]
  - Hepatic adenoma [Recovered/Resolved with Sequelae]

NARRATIVE: CASE EVENT DATE: 20171208
